FAERS Safety Report 12625416 (Version 2)
Quarter: 2016Q3

REPORT INFORMATION
  Report Type: Spontaneous
  Country: CN (occurrence: CN)
  Receive Date: 20160805
  Receipt Date: 20160817
  Transmission Date: 20161109
  Serious: Yes (Other)
  Sender: FDA-Public Use
  Company Number: CN-JNJFOC-20160800099

PATIENT
  Age: 46 Year
  Sex: Male

DRUGS (1)
  1. INVEGA SUSTENNA [Suspect]
     Active Substance: PALIPERIDONE PALMITATE
     Indication: SCHIZOPHRENIA
     Dosage: FOR MORE THAN ONE YEAR
     Route: 030

REACTIONS (2)
  - Suicide attempt [Unknown]
  - Priapism [Not Recovered/Not Resolved]
